FAERS Safety Report 6456144-6 (Version None)
Quarter: 2009Q4

REPORT INFORMATION
  Report Type: 
  Country: None (occurrence: None)
  Receive Date: 20091125
  Receipt Date: 20091117
  Transmission Date: 20100525
  Serious: Yes (Hospitalization)
  Sender: FDA-Public Use
  Company Number: FR-ASTRAZENECA-2009SE26953

PATIENT
  Age: 27052 Day
  Sex: Male

DRUGS (5)
  1. SYMBICORT [Suspect]
     Dosage: 160/4.5 UG, TWO INHALATIONS
     Route: 055
     Dates: end: 20080321
  2. FUROSEMIDE [Suspect]
     Indication: HYPERTENSION
     Route: 048
     Dates: start: 20071217, end: 20080321
  3. SOLUPRED [Suspect]
     Indication: TENDONITIS
     Route: 048
     Dates: start: 20080227, end: 20080306
  4. VALSARTAN AND HYDROCHLOROTHIAZIDE [Suspect]
     Indication: HYPERTENSION
     Dosage: 80 MG/12.5 MG
     Route: 048
     Dates: end: 20080321
  5. PERCUTALGINE GEL [Suspect]
     Indication: TENDONITIS
     Route: 003
     Dates: start: 20080227, end: 20080306

REACTIONS (2)
  - HYPOKALAEMIA [None]
  - LOSS OF CONSCIOUSNESS [None]
